FAERS Safety Report 7262281-9 (Version None)
Quarter: 2011Q1

REPORT INFORMATION
  Report Type: 
  Country: None (occurrence: None)
  Receive Date: 20110130
  Receipt Date: 20101115
  Transmission Date: 20110831
  Serious: No
  Sender: FDA-Public Use
  Company Number: US-ABBOTT-10P-163-0685559-00

PATIENT
  Age: 54 Year
  Sex: Female

DRUGS (3)
  1. ESTRACE PATCH [Concomitant]
     Indication: PRODUCT USED FOR UNKNOWN INDICATION
  2. ASULFADINE [Concomitant]
     Indication: PRODUCT USED FOR UNKNOWN INDICATION
     Dosage: 2-4 TABS
  3. HUMIRA [Suspect]
     Indication: CROHN'S DISEASE
     Dates: start: 20100928

REACTIONS (2)
  - ARTHRALGIA [None]
  - POUCHITIS [None]
